FAERS Safety Report 5306386-8 (Version None)
Quarter: 2007Q2

REPORT INFORMATION
  Report Type: 
  Country: None (occurrence: None)
  Receive Date: 20070419
  Receipt Date: 20070404
  Transmission Date: 20071010
  Serious: Yes (Other)
  Sender: FDA-Public Use
  Company Number: 012522

PATIENT
  Age: 50 Year
  Sex: Male

DRUGS (1)
  1. ANTABUSE [Suspect]
     Indication: ALCOHOLISM
     Dosage: 200 MG/DAY

REACTIONS (5)
  - DELIRIUM [None]
  - DELUSION [None]
  - DISORIENTATION [None]
  - JUDGEMENT IMPAIRED [None]
  - MEMORY IMPAIRMENT [None]
